FAERS Safety Report 5907189-3 (Version None)
Quarter: 2008Q3

REPORT INFORMATION
  Report Type: 
  Country: None (occurrence: None)
  Receive Date: 20080929
  Receipt Date: 20080916
  Transmission Date: 20090109
  Serious: No
  Sender: FDA-Public Use
  Company Number: 004556

PATIENT
  Age: 55 Year
  Sex: Male

DRUGS (1)
  1. PLETAL [Suspect]
     Indication: THROMBOTIC CEREBRAL INFARCTION
     Dosage: 100 MG, DAILY DOSE, ORAL, 200 MG DAILY DOSE; ORAL
     Route: 048

REACTIONS (2)
  - CAROTID ARTERY STENOSIS [None]
  - THROMBOSIS [None]
